FAERS Safety Report 6927969-5 (Version None)
Quarter: 2010Q3

REPORT INFORMATION
  Report Type: 
  Country: None (occurrence: None)
  Receive Date: 20100817
  Receipt Date: 20100803
  Transmission Date: 20110219
  Serious: Yes (Other)
  Sender: FDA-Public Use
  Company Number: GB-SOLVAY-00310004861

PATIENT
  Age: 69 Year
  Sex: Male

DRUGS (11)
  1. INSULIN GLARGINE [Concomitant]
     Indication: PRODUCT USED FOR UNKNOWN INDICATION
     Dosage: DAILY DOSE:  UNKNOWN, AS USED: 3 MILLILITRE(S).
     Route: 065
  2. ATORVASTATIN [Concomitant]
     Indication: PRODUCT USED FOR UNKNOWN INDICATION
     Dosage: DAILY DOSE: 10 MILLIGRAM(S)
     Route: 065
  3. GLICLAZIDE [Concomitant]
     Indication: PRODUCT USED FOR UNKNOWN INDICATION
     Dosage: DAILY DOSE: 320 MILLIGRAM(S)
     Route: 065
  4. CREON [Suspect]
     Indication: PANCREATITIS
     Dosage: DAILY DOSE: 6 DOSAGE FORM, CREON 25,000
     Route: 048
     Dates: start: 20100315, end: 20100101
  5. CREON [Suspect]
     Dosage: DAILY DOSE: 6 DOSAGE FORM, CREON 10,000
     Route: 048
     Dates: start: 20100514, end: 20100701
  6. TADALAFIL [Concomitant]
     Indication: PRODUCT USED FOR UNKNOWN INDICATION
     Dosage: DAILY DOSE:  UNKNOWN, AS USED: 10 MILLIGRAM(S), FREQUENCY: AS NEEDED.
     Route: 065
  7. URSODIOL [Concomitant]
     Indication: PRODUCT USED FOR UNKNOWN INDICATION
     Dosage: DAILY DOSE: 1000 MILLIGRAM(S)
     Route: 065
  8. ASACOL [Concomitant]
     Indication: PRODUCT USED FOR UNKNOWN INDICATION
     Dosage: DAILY DOSE: 2400 MILLIGRAM(S), FORM : MODIFIED-RELEASE TABLET.
     Route: 065
  9. ATENOLOL [Concomitant]
     Indication: PRODUCT USED FOR UNKNOWN INDICATION
     Dosage: DAILY DOSE: 50 MILLIGRAM(S)
     Route: 065
  10. CANDESARTAN [Concomitant]
     Indication: PRODUCT USED FOR UNKNOWN INDICATION
     Dosage: DAILY DOSE: 8 MILLIGRAM(S)
     Route: 065
  11. NOVORAPID [Concomitant]
     Indication: PRODUCT USED FOR UNKNOWN INDICATION
     Dosage: DAILY DOSE:  UNKNOWN
     Route: 065

REACTIONS (3)
  - GOUT [None]
  - URINE KETONE BODY PRESENT [None]
  - VEIN DISORDER [None]
